FAERS Safety Report 12202327 (Version 1)
Quarter: 2016Q1

REPORT INFORMATION
  Report Type: Spontaneous
  Country: JP (occurrence: JP)
  Receive Date: 20160322
  Receipt Date: 20160322
  Transmission Date: 20160526
  Serious: Yes (Other)
  Sender: FDA-Public Use
  Company Number: PHHY2016JP036241

PATIENT
  Age: 84 Year
  Sex: Female

DRUGS (4)
  1. PIRARUBICIN [Suspect]
     Active Substance: PIRARUBICIN
     Indication: LYMPHOMA
     Route: 065
  2. VINCRISTINE [Suspect]
     Active Substance: VINCRISTINE
     Indication: LYMPHOMA
     Route: 065
  3. PREDNISOLONE. [Suspect]
     Active Substance: PREDNISOLONE
     Indication: LYMPHOMA
     Route: 065
  4. CYCLOPHOSPHAMIDE. [Suspect]
     Active Substance: CYCLOPHOSPHAMIDE
     Indication: LYMPHOMA
     Route: 065

REACTIONS (2)
  - Hepatitis acute [Not Recovered/Not Resolved]
  - Hepatitis B [Not Recovered/Not Resolved]
